FAERS Safety Report 9405633 (Version 1)
Quarter: 2013Q3

REPORT INFORMATION
  Report Type: Spontaneous
  Country: DE (occurrence: DE)
  Receive Date: 20130717
  Receipt Date: 20130717
  Transmission Date: 20140515
  Serious: Yes (Death, Other)
  Sender: FDA-Public Use
  Company Number: DE-BAXTER-2013BAX026937

PATIENT
  Age: 33 Year
  Sex: Male

DRUGS (2)
  1. ENDOXAN 1G [Suspect]
     Indication: PRODUCT USED FOR UNKNOWN INDICATION
     Dosage: 2X60 MG/KG
     Route: 065
  2. BUSULFAN [Suspect]
     Indication: PRODUCT USED FOR UNKNOWN INDICATION
     Dosage: 14X0.8 MG/KG
     Route: 065

REACTIONS (7)
  - Sepsis [Fatal]
  - Acute megakaryocytic leukaemia [Fatal]
  - Graft versus host disease in liver [Unknown]
  - Multi-organ failure [Unknown]
  - Pneumonia [Unknown]
  - Graft versus host disease in skin [Unknown]
  - Graft versus host disease in intestine [Unknown]
